FAERS Safety Report 25647691 (Version 3)
Quarter: 2025Q3

REPORT INFORMATION
  Report Type: Spontaneous
  Country: PE (occurrence: PE)
  Receive Date: 20250806
  Receipt Date: 20250911
  Transmission Date: 20251021
  Serious: Yes (Other)
  Sender: AMGEN
  Company Number: PE-PFIZER INC-PV202500093330

PATIENT
  Age: 42 Year
  Sex: Female

DRUGS (1)
  1. ENBREL [Suspect]
     Active Substance: ETANERCEPT
     Indication: Product used for unknown indication
     Route: 058
     Dates: start: 20231009, end: 202506

REACTIONS (4)
  - Knee operation [Unknown]
  - Chondromalacia [Unknown]
  - Axial spondyloarthritis [Unknown]
  - Meniscus injury [Unknown]
